FAERS Safety Report 8208223-0 (Version None)
Quarter: 2012Q1

REPORT INFORMATION
  Report Type: 
  Country: None (occurrence: None)
  Receive Date: 20120314
  Receipt Date: 20120309
  Transmission Date: 20120608
  Serious: Yes (Hospitalization)
  Sender: FDA-Public Use
  Company Number: PHEH2012US004175

PATIENT
  Sex: Male
  Weight: 29 kg

DRUGS (1)
  1. EXJADE [Suspect]
     Indication: IRON OVERLOAD
     Dosage: 1000 MG DAILY
     Route: 048
     Dates: start: 20091009

REACTIONS (6)
  - ABDOMINAL PAIN [None]
  - SPLENOMEGALY [None]
  - HEPATOMEGALY [None]
  - SICKLE CELL ANAEMIA WITH CRISIS [None]
  - COUGH [None]
  - CONSTIPATION [None]
